FAERS Safety Report 4532448-9 (Version None)
Quarter: 2004Q4

REPORT INFORMATION
  Report Type: 
  Country: None (occurrence: None)
  Receive Date: 20041203
  Receipt Date: 20041122
  Transmission Date: 20050328
  Serious: Yes (Hospitalization)
  Sender: FDA-Public Use
  Company Number: 2004UW24064

PATIENT
  Age: 80 Year
  Sex: Male

DRUGS (5)
  1. CRESTOR [Suspect]
     Dosage: 5 MG PO
     Route: 048
  2. PREVPAC [Suspect]
  3. NORVASC [Concomitant]
  4. HYDROCHLOROTHIAZIDE [Concomitant]
  5. XANAX [Concomitant]

REACTIONS (2)
  - BLOOD CREATINE PHOSPHOKINASE INCREASED [None]
  - MYALGIA [None]
